FAERS Safety Report 21987003 (Version 1)
Quarter: 2023Q1

REPORT INFORMATION
  Report Type: Spontaneous
  Country: US (occurrence: US)
  Receive Date: 20230213
  Receipt Date: 20230213
  Transmission Date: 20230418
  Serious: Yes (Other)
  Sender: FDA-Public Use
  Company Number: US-ALLERGAN-2303508US

PATIENT
  Sex: Female

DRUGS (1)
  1. REFRESH TEARS [Suspect]
     Active Substance: CARBOXYMETHYLCELLULOSE SODIUM
     Indication: Macular degeneration
     Dosage: 3 TO 4 PER DAY
     Route: 047
     Dates: start: 2021

REACTIONS (4)
  - Macular degeneration [Unknown]
  - Vitreous floaters [Unknown]
  - Off label use [Unknown]
  - Eye pruritus [Unknown]
